FAERS Safety Report 5780032-1 (Version None)
Quarter: 2008Q2

REPORT INFORMATION
  Report Type: 
  Country: None (occurrence: None)
  Receive Date: 20080620
  Receipt Date: 20080609
  Transmission Date: 20081010
  Serious: Yes (Hospitalization)
  Sender: FDA-Public Use
  Company Number: US-ROCHE-569595

PATIENT
  Age: 36 Year
  Sex: Female

DRUGS (2)
  1. MYCOPHENOLATE MOFETIL [Suspect]
     Indication: SYSTEMIC LUPUS ERYTHEMATOSUS
     Dosage: STARTED ON 500MG ONCE DAILY, DOSAGE GRADUALLY TITRATED UP TO 1000 MG TWICE DAILY OVER NEXT 2 MONTHS.
     Route: 065
     Dates: start: 20060201
  2. MYCOPHENOLATE MOFETIL [Suspect]
     Dosage: MAINTENANCE THERAPY.
     Route: 065

REACTIONS (1)
  - INFLAMMATION [None]
